FAERS Safety Report 6038305-3 (Version None)
Quarter: 2009Q1

REPORT INFORMATION
  Report Type: 
  Country: None (occurrence: None)
  Receive Date: 20090115
  Receipt Date: 20090108
  Transmission Date: 20090719
  Serious: Yes (Other)
  Sender: FDA-Public Use
  Company Number: FR-BAYER-200717042GPV

PATIENT
  Age: 41 Year
  Sex: Female
  Weight: 70 kg

DRUGS (2)
  1. MIRENA [Suspect]
     Indication: MENORRHAGIA
     Dosage: UNIT DOSE: 20 ?G/D
     Route: 015
     Dates: start: 20010101, end: 20050101
  2. MIRENA [Suspect]
     Dosage: UNIT DOSE: 20 ?G/D
     Route: 015
     Dates: start: 20050101

REACTIONS (1)
  - BREAST CANCER STAGE I [None]
